FAERS Safety Report 5956915-6 (Version None)
Quarter: 2008Q4

REPORT INFORMATION
  Report Type: 
  Country: None (occurrence: None)
  Receive Date: 20081118
  Receipt Date: 20081113
  Transmission Date: 20090506
  Serious: Yes (Hospitalization, Other)
  Sender: FDA-Public Use
  Company Number: CA-PFIZER INC-2008093693

PATIENT
  Age: 46 Year
  Sex: Male
  Weight: 79.4 kg

DRUGS (1)
  1. CHAMPIX [Suspect]
     Indication: SMOKING CESSATION THERAPY
     Route: 048
     Dates: start: 20080401, end: 20080601

REACTIONS (4)
  - AGITATION [None]
  - ANGER [None]
  - MIGRAINE [None]
  - SUICIDE ATTEMPT [None]
